FAERS Safety Report 9746039 (Version 1)
Quarter: 2013Q4

REPORT INFORMATION
  Report Type: Spontaneous
  Country: ES (occurrence: ES)
  Receive Date: 20131211
  Receipt Date: 20131211
  Transmission Date: 20140711
  Serious: No
  Sender: FDA-Public Use
  Company Number: ES-GILEAD-2009-0023268

PATIENT
  Sex: Male

DRUGS (3)
  1. ATRIPLA [Suspect]
     Indication: PRODUCT USED FOR UNKNOWN INDICATION
  2. COMBIVIR [Concomitant]
  3. SUSTIVA [Concomitant]

REACTIONS (3)
  - Pain [Unknown]
  - Pruritus generalised [Unknown]
  - Hallucination [Unknown]
